FAERS Safety Report 13517764 (Version 1)
Quarter: 2017Q2

REPORT INFORMATION
  Report Type: Spontaneous
  Country: GB (occurrence: GB)
  Receive Date: 20170505
  Receipt Date: 20170505
  Transmission Date: 20170830
  Serious: Yes (Other)
  Sender: FDA-Public Use
  Company Number: GB-TEVA-763596ACC

PATIENT
  Age: 50 Year
  Sex: Female
  Weight: 58.06 kg

DRUGS (2)
  1. VALERIAN [Concomitant]
     Active Substance: VALERIAN
  2. MIRTAZAPINE. [Suspect]
     Active Substance: MIRTAZAPINE
     Indication: SLEEP DISORDER
     Route: 048
     Dates: start: 20060317

REACTIONS (2)
  - Paranoia [Recovered/Resolved]
  - Restless legs syndrome [Recovered/Resolved]

NARRATIVE: CASE EVENT DATE: 20060409
